FAERS Safety Report 13166094 (Version 1)
Quarter: 2017Q1

REPORT INFORMATION
  Report Type: Spontaneous
  Country: US (occurrence: US)
  Receive Date: 20170131
  Receipt Date: 20170131
  Transmission Date: 20170428
  Serious: Yes (Death, Other)
  Sender: FDA-Public Use
  Company Number: US-ZYDUS-013463

PATIENT
  Age: 4 Day
  Sex: Male

DRUGS (4)
  1. ESCITALOPRAM [Suspect]
     Active Substance: ESCITALOPRAM OXALATE
     Indication: PRODUCT USED FOR UNKNOWN INDICATION
     Route: 064
  2. SERTRALINE [Suspect]
     Active Substance: SERTRALINE HYDROCHLORIDE
     Indication: PRODUCT USED FOR UNKNOWN INDICATION
     Route: 064
  3. ONDANSETRON [Suspect]
     Active Substance: ONDANSETRON
     Indication: PRODUCT USED FOR UNKNOWN INDICATION
     Route: 064
  4. PROGESTERONE. [Suspect]
     Active Substance: PROGESTERONE
     Indication: PRODUCT USED FOR UNKNOWN INDICATION
     Route: 064

REACTIONS (7)
  - Dilatation ventricular [Not Recovered/Not Resolved]
  - Systolic dysfunction [Not Recovered/Not Resolved]
  - Cardiac failure [Not Recovered/Not Resolved]
  - Foetal exposure during pregnancy [Unknown]
  - Human herpesvirus 6 infection [Unknown]
  - Cardiomyopathy neonatal [Not Recovered/Not Resolved]
  - Multiple organ dysfunction syndrome [Fatal]
